FAERS Safety Report 7013242-6 (Version None)
Quarter: 2010Q3

REPORT INFORMATION
  Report Type: 
  Country: None (occurrence: None)
  Receive Date: 20100924
  Receipt Date: 20100916
  Transmission Date: 20110219
  Serious: Yes (Other)
  Sender: FDA-Public Use
  Company Number: CA-MERCK-1009USA03708

PATIENT
  Age: 59 Year
  Sex: Female
  Weight: 44 kg

DRUGS (1)
  1. FOSAMAX PLUS D [Suspect]
     Route: 048

REACTIONS (11)
  - ARTHRALGIA [None]
  - C-REACTIVE PROTEIN NORMAL [None]
  - ERYTHEMA [None]
  - FATIGUE [None]
  - GAIT DISTURBANCE [None]
  - HEADACHE [None]
  - JOINT SWELLING [None]
  - MYALGIA [None]
  - OEDEMA [None]
  - SKIN WARM [None]
  - SYNOVITIS [None]
